FAERS Safety Report 8054011-8 (Version None)
Quarter: 2011Q4

REPORT INFORMATION
  Report Type: 
  Country: None (occurrence: None)
  Receive Date: 20111213
  Receipt Date: 20110914
  Transmission Date: 20120403
  Serious: No
  Sender: FDA-Public Use
  Company Number: 2011SP043518

PATIENT
  Age: 46 Year
  Sex: Female

DRUGS (6)
  1. CYMBALTA [Concomitant]
  2. XANAX [Concomitant]
  3. SAPHRIS [Suspect]
     Indication: PRODUCT USED FOR UNKNOWN INDICATION
     Dosage: SL; 10 MG;HS;SL
     Route: 060
     Dates: start: 20110907
  4. SAPHRIS [Suspect]
     Indication: PRODUCT USED FOR UNKNOWN INDICATION
     Dosage: SL; 10 MG;HS;SL
     Route: 060
     Dates: start: 20110913
  5. LAMICTAL [Concomitant]
  6. TOPAMAX [Concomitant]

REACTIONS (3)
  - STOMATITIS [None]
  - INAPPROPRIATE SCHEDULE OF DRUG ADMINISTRATION [None]
  - STRESS [None]
